FAERS Safety Report 9827317 (Version 1)
Quarter: 2013Q4

REPORT INFORMATION
  Report Type: Spontaneous
  Country: US (occurrence: None)
  Receive Date: 20131112
  Receipt Date: 20131112
  Transmission Date: 20140711
  Serious: Yes (Other)
  Sender: FDA-Public Use
  Company Number: US-013318

PATIENT
  Age: 61 Year
  Sex: Male
  Weight: 86.18 kg

DRUGS (4)
  1. PICO-SALAX [Suspect]
     Indication: BOWEL PREPARATION
     Dosage: (TOOK FIRST PACKET AT 5 PM ON 14-OCT-2013)
     Dates: start: 20131014, end: 20131015
  2. OXYCONTIN [Concomitant]
  3. CYMBALTA [Concomitant]
  4. AMLODIPINE [Concomitant]

REACTIONS (2)
  - Drug ineffective [None]
  - Feeling abnormal [None]
